FAERS Safety Report 4867685-7 (Version None)
Quarter: 2005Q4

REPORT INFORMATION
  Report Type: 
  Country: None (occurrence: None)
  Receive Date: 20051222
  Receipt Date: 20020413
  Transmission Date: 20060501
  Serious: Yes (Hospitalization)
  Sender: FDA-Public Use
  Company Number: 8-98132-010G

PATIENT
  Age: 81 Year
  Sex: Female

DRUGS (1)
  1. MYLOTARG [Suspect]
     Indication: ACUTE MYELOID LEUKAEMIA
     Dosage: 9 MG/M 2/CYCLE, INTRAVENOUS
     Route: 042
     Dates: start: 19980421, end: 19980421

REACTIONS (7)
  - DEHYDRATION [None]
  - EPISTAXIS [None]
  - MELAENA [None]
  - NAUSEA [None]
  - RECTAL HAEMORRHAGE [None]
  - THROMBOCYTOPENIA [None]
  - WHITE BLOOD CELL COUNT DECREASED [None]
